FAERS Safety Report 6315946-7 (Version None)
Quarter: 2009Q3

REPORT INFORMATION
  Report Type: 
  Country: None (occurrence: None)
  Receive Date: 20090820
  Receipt Date: 20090430
  Transmission Date: 20100115
  Serious: No
  Sender: FDA-Public Use
  Company Number: US-KINGPHARMUSA00001-K200900534

PATIENT
  Sex: Female
  Weight: 49.887 kg

DRUGS (5)
  1. CYTOMEL [Suspect]
     Indication: THYROID DISORDER
     Dosage: 25 MCG, QD
     Dates: start: 20080801, end: 20081001
  2. PREMPRO [Concomitant]
     Indication: HORMONE REPLACEMENT THERAPY
     Dosage: UNK
  3. CELEXA [Concomitant]
     Indication: DEPRESSION
     Dosage: UNK
  4. CELEXA [Concomitant]
     Indication: INSOMNIA
  5. SYNTHROID [Concomitant]

REACTIONS (7)
  - ALOPECIA [None]
  - BLOOD THYROID STIMULATING HORMONE DECREASED [None]
  - CONFUSIONAL STATE [None]
  - HEART RATE INCREASED [None]
  - IRRITABILITY [None]
  - OEDEMA PERIPHERAL [None]
  - WEIGHT DECREASED [None]
